FAERS Safety Report 7208007-6 (Version None)
Quarter: 2010Q4

REPORT INFORMATION
  Report Type: 
  Country: None (occurrence: None)
  Receive Date: 20101230
  Receipt Date: 20101230
  Transmission Date: 20110411
  Serious: Yes (Other)
  Sender: FDA-Public Use
  Company Number: None

PATIENT
  Sex: Male
  Weight: 74.3899 kg

DRUGS (8)
  1. RITUXAN (UNKNOWN) [Suspect]
     Indication: LYMPHOMA
     Dosage: 800 MG QW IV # 8 0F 8
     Route: 042
     Dates: start: 20100525
  2. RITUXAN (UNKNOWN) [Suspect]
     Indication: LYMPHOMA
     Dosage: 800 MG QW IV # 8 0F 8
     Route: 042
     Dates: start: 20100614
  3. RITUXAN (UNKNOWN) [Suspect]
     Indication: LYMPHOMA
     Dosage: 800 MG QW IV # 8 0F 8
     Route: 042
     Dates: start: 20100702
  4. RITUXAN (UNKNOWN) [Suspect]
     Indication: LYMPHOMA
     Dosage: 800 MG QW IV # 8 0F 8
     Route: 042
     Dates: start: 20100722
  5. CYTOXAN [Concomitant]
  6. PREDNISONE [Concomitant]
  7. BENADRYL [Concomitant]
  8. COUMADIN [Concomitant]

REACTIONS (4)
  - BACK PAIN [None]
  - CHILLS [None]
  - HEART RATE INCREASED [None]
  - TREMOR [None]
